FAERS Safety Report 8433382-4 (Version None)
Quarter: 2012Q2

REPORT INFORMATION
  Report Type: 
  Country: None (occurrence: None)
  Receive Date: 20120613
  Receipt Date: 20120604
  Transmission Date: 20120825
  Serious: Yes (Hospitalization, Disabling, Other)
  Sender: FDA-Public Use
  Company Number: US-MERCK-1003USA03815

PATIENT
  Age: 52 Year
  Sex: Female
  Weight: 57 kg

DRUGS (7)
  1. FOSAMAX [Suspect]
     Indication: OSTEOPENIA
     Route: 048
     Dates: start: 20030101, end: 20060601
  2. BONIVA [Suspect]
     Indication: OSTEOPENIA
     Route: 048
     Dates: start: 20060101, end: 20090501
  3. FOSAMAX [Suspect]
     Indication: OSTEOPOROSIS
     Route: 048
     Dates: start: 20030101, end: 20060601
  4. CALCIUM (UNSPECIFIED) [Concomitant]
     Route: 048
     Dates: start: 20000101
  5. SYNTHROID [Concomitant]
     Indication: HYPOTHYROIDISM
     Route: 048
     Dates: start: 19800101
  6. BONIVA [Suspect]
     Indication: OSTEOPOROSIS
     Route: 048
     Dates: start: 20060101, end: 20090501
  7. PREMARIN [Concomitant]
     Route: 048
     Dates: start: 19950101

REACTIONS (32)
  - HYPERTENSION [None]
  - DIABETES MELLITUS INADEQUATE CONTROL [None]
  - CARTILAGE INJURY [None]
  - TEMPERATURE INTOLERANCE [None]
  - ONYCHOMYCOSIS [None]
  - DEHYDRATION [None]
  - URINARY TRACT INFECTION [None]
  - SCOLIOSIS [None]
  - MAMMOGRAM ABNORMAL [None]
  - FRACTURE NONUNION [None]
  - VITAMIN D DEFICIENCY [None]
  - NAUSEA [None]
  - JOINT STIFFNESS [None]
  - ROTATOR CUFF SYNDROME [None]
  - APHTHOUS STOMATITIS [None]
  - ABDOMINAL PAIN [None]
  - EXOSTOSIS [None]
  - FOOT FRACTURE [None]
  - OSTEOARTHRITIS [None]
  - BUNION [None]
  - DEPRESSION [None]
  - RASH [None]
  - FRACTURE DELAYED UNION [None]
  - FEMUR FRACTURE [None]
  - DIABETIC RETINOPATHY [None]
  - PELVIC FRACTURE [None]
  - FUNGAL INFECTION [None]
  - DIARRHOEA [None]
  - EXCORIATION [None]
  - BURSITIS [None]
  - MUSCULOSKELETAL PAIN [None]
  - FALL [None]
